FAERS Safety Report 24556346 (Version 1)
Quarter: 2024Q4

REPORT INFORMATION
  Report Type: Spontaneous
  Country: US (occurrence: None)
  Receive Date: 20241027
  Receipt Date: 20241027
  Transmission Date: 20250115
  Serious: Yes (Other)
  Sender: Public
  Company Number: None

PATIENT
  Sex: 0

DRUGS (1)
  1. ABILIFY [Suspect]
     Active Substance: ARIPIPRAZOLE
     Indication: Depression
     Dosage: OTHER STRENGTH : N/A?OTHER QUANTITY : 50 N/A?OTHER FREQUENCY : N/A;?
     Route: 048
     Dates: start: 20230801, end: 20230901

REACTIONS (1)
  - Alopecia [None]

NARRATIVE: CASE EVENT DATE: 20220801
